FAERS Safety Report 14715585 (Version 1)
Quarter: 2018Q2

REPORT INFORMATION
  Report Type: Spontaneous
  Country: IT (occurrence: IT)
  Receive Date: 20180404
  Receipt Date: 20180404
  Transmission Date: 20180711
  Serious: Yes (Hospitalization)
  Sender: FDA-Public Use
  Company Number: IT-PFIZER INC-2018133045

PATIENT
  Sex: Female

DRUGS (2)
  1. XANAX [Suspect]
     Active Substance: ALPRAZOLAM
     Dosage: 0.50 MG, UNK
  2. XANAX [Suspect]
     Active Substance: ALPRAZOLAM
     Dosage: 0.50 MG, UNK

REACTIONS (3)
  - Nausea [Unknown]
  - Vomiting [Unknown]
  - Paradoxical drug reaction [Unknown]
